FAERS Safety Report 8825551 (Version 1)
Quarter: 2012Q4

REPORT INFORMATION
  Report Type: 
  Country: US (occurrence: US)
  Receive Date: 20121004
  Receipt Date: 20121004
  Transmission Date: 20130627
  Serious: Yes (Hospitalization)
  Sender: FDA-Public Use
  Company Number: US-ASTRAZENECA-2012SE74518

PATIENT
  Age: 74 Year

DRUGS (7)
  1. CRESTOR [Suspect]
     Route: 048
  2. LISINOPRIL HCTZ [Suspect]
     Route: 065
  3. ASPIRIN [Suspect]
     Route: 065
  4. LIPITOR [Suspect]
     Route: 065
  5. ZETIA [Suspect]
     Route: 065
  6. VITAMIN D [Suspect]
     Route: 065
  7. COREG [Suspect]
     Route: 065

REACTIONS (3)
  - Renal failure acute [Unknown]
  - Hypotension [Unknown]
  - Drug hypersensitivity [Unknown]
